FAERS Safety Report 12536626 (Version 2)
Quarter: 2016Q3

REPORT INFORMATION
  Report Type: Spontaneous
  Country: US (occurrence: US)
  Receive Date: 20160707
  Receipt Date: 20160817
  Transmission Date: 20161109
  Serious: No
  Sender: FDA-Public Use
  Company Number: US-PFIZER INC-2016296089

PATIENT
  Age: 17 Year
  Sex: Female

DRUGS (2)
  1. LEXAPRO [Concomitant]
     Active Substance: ESCITALOPRAM OXALATE
     Dosage: UNK
     Dates: start: 201602
  2. PRAZOSIN HCL [Suspect]
     Active Substance: PRAZOSIN HYDROCHLORIDE
     Indication: POST-TRAUMATIC STRESS DISORDER
     Dosage: 20 MG, DAILY
     Dates: start: 201605

REACTIONS (3)
  - Reaction to drug excipients [Not Recovered/Not Resolved]
  - Nausea [Not Recovered/Not Resolved]
  - Product use issue [Unknown]

NARRATIVE: CASE EVENT DATE: 201605
